FAERS Safety Report 18590388 (Version 13)
Quarter: 2021Q1

REPORT INFORMATION
  Report Type: Spontaneous
  Country: GB (occurrence: GB)
  Receive Date: 20201208
  Receipt Date: 20210203
  Transmission Date: 20210419
  Serious: Yes (Other)
  Sender: FDA-Public Use
  Company Number: GB-PFIZER INC-2020473974

PATIENT
  Age: 64 Year
  Sex: Female
  Weight: 58.35 kg

DRUGS (9)
  1. TOLVAPTAN [Suspect]
     Active Substance: TOLVAPTAN
     Indication: HYPONATRAEMIA
     Dosage: 75 MG, 1X/DAY
     Route: 048
     Dates: start: 20200218
  2. VALGANCICLOVIR. [Suspect]
     Active Substance: VALGANCICLOVIR
     Indication: CYTOMEGALOVIRUS CHORIORETINITIS
     Dosage: 1800 MG, TWICE DAILY, ALSO REPORTED AS EVERY DAY
     Route: 048
     Dates: start: 20200916
  3. PENTAMIDINE ISETIONATE [Suspect]
     Active Substance: PENTAMIDINE ISETHIONATE
     Indication: NEUTROPENIA
     Dosage: UNK
  4. BACTERIOSTATIC SODIUM CHLORIDE [Suspect]
     Active Substance: SODIUM CHLORIDE
     Indication: MEDICATION DILUTION
     Dosage: 1 (UNIT UNKNOWN), MONTHLY
     Route: 042
     Dates: start: 20201028
  5. PENTAMIDINE [Suspect]
     Active Substance: PENTAMIDINE
     Indication: ANTIFUNGAL PROPHYLAXIS
     Dosage: 1 DF, MONTHLY
     Route: 065
     Dates: start: 20201028
  6. WATER FOR INJECTIONS [Suspect]
     Active Substance: WATER
     Indication: MEDICATION DILUTION
     Dosage: 1 (UNIT UNKNOWN), MONTHLY
     Dates: start: 20201028
  7. PENTAMIDINE [Suspect]
     Active Substance: PENTAMIDINE
     Indication: NEUTROPENIA
     Dosage: UNK
  8. PENTAMIDINE ISETIONATE [Suspect]
     Active Substance: PENTAMIDINE ISETHIONATE
     Indication: ANTIFUNGAL PROPHYLAXIS
     Dosage: 240 MG, MONTHLY
     Dates: start: 20201028
  9. FILGRASTIM [Suspect]
     Active Substance: FILGRASTIM
     Indication: NEUTROPENIA
     Dosage: 60 MIU, WEEKLY
     Route: 058
     Dates: start: 20201020

REACTIONS (4)
  - Infusion site swelling [Recovered/Resolved]
  - Off label use [Unknown]
  - Infusion site erythema [Recovered/Resolved]
  - Pruritus [Recovered/Resolved]

NARRATIVE: CASE EVENT DATE: 20201020
